FAERS Safety Report 22343126 (Version 1)
Quarter: 2023Q2

REPORT INFORMATION
  Report Type: Spontaneous
  Country: CN (occurrence: CN)
  Receive Date: 20230519
  Receipt Date: 20230519
  Transmission Date: 20230722
  Serious: Yes (Other)
  Sender: FDA-Public Use
  Company Number: CN-JNJFOC-20230531195

PATIENT
  Sex: Female

DRUGS (2)
  1. INVEGA [Suspect]
     Active Substance: PALIPERIDONE
     Indication: Mental disorder
     Route: 048
     Dates: start: 20230211
  2. INVEGA [Suspect]
     Active Substance: PALIPERIDONE
     Indication: Delusional disorder, unspecified type
     Route: 048
     Dates: start: 20230211

REACTIONS (12)
  - Gaze palsy [Unknown]
  - Dystonia [Unknown]
  - Epilepsy [Unknown]
  - Ligament rupture [Unknown]
  - Fall [Unknown]
  - Asthenia [Unknown]
  - Akathisia [Unknown]
  - Dizziness [Unknown]
  - Nystagmus [Unknown]
  - Torticollis [Unknown]
  - Overdose [Unknown]
  - Gait disturbance [Unknown]

NARRATIVE: CASE EVENT DATE: 20230201
